FAERS Safety Report 7742369-6 (Version None)
Quarter: 2011Q3

REPORT INFORMATION
  Report Type: 
  Country: None (occurrence: None)
  Receive Date: 20110912
  Receipt Date: 20100927
  Transmission Date: 20111222
  Serious: No
  Sender: FDA-Public Use
  Company Number: US-BAYER-201034850NA

PATIENT
  Age: 66 Year
  Sex: Male

DRUGS (8)
  1. ADVAIR DISKUS 100/50 [Concomitant]
  2. LEVITRA [Suspect]
     Indication: ERECTILE DYSFUNCTION
     Route: 048
     Dates: start: 20100821, end: 20100821
  3. HUMALOG [Concomitant]
     Dosage: 25/75
  4. LEVITRA [Suspect]
     Route: 048
     Dates: start: 20100918, end: 20100918
  5. METFORMIN [Concomitant]
  6. PROVENTIL [Concomitant]
  7. SIMVASTATIN [Concomitant]
  8. LISINOPRIL [Concomitant]

REACTIONS (6)
  - ERECTILE DYSFUNCTION [None]
  - EYE PAIN [None]
  - ASTHENIA [None]
  - TINNITUS [None]
  - NAUSEA [None]
  - FATIGUE [None]
